FAERS Safety Report 4960414-8 (Version None)
Quarter: 2006Q2

REPORT INFORMATION
  Report Type: 
  Country: None (occurrence: None)
  Receive Date: 20060403
  Receipt Date: 20060227
  Transmission Date: 20061013
  Serious: Yes (Death)
  Sender: FDA-Public Use
  Company Number: JP-BRISTOL-MYERS SQUIBB COMPANY-13300363

PATIENT
  Age: 67 Year
  Sex: Male

DRUGS (4)
  1. MAXIPIME [Suspect]
     Indication: POSTOPERATIVE INFECTION
     Route: 042
  2. PRODIF [Suspect]
  3. MEROPEN [Suspect]
  4. HABEKACIN [Suspect]

REACTIONS (2)
  - ACUTE RESPIRATORY DISTRESS SYNDROME [None]
  - ALVEOLITIS ALLERGIC [None]
